FAERS Safety Report 22137732 (Version 1)
Quarter: 2023Q1

REPORT INFORMATION
  Report Type: Report from Study
  Country: US (occurrence: US)
  Receive Date: 20230325
  Receipt Date: 20230325
  Transmission Date: 20230418
  Serious: No
  Sender: FDA-Public Use
  Company Number: US-002147023-NVSC2023US064983

PATIENT
  Age: 71 Year
  Sex: Female

DRUGS (1)
  1. LEQVIO [Suspect]
     Active Substance: INCLISIRAN SODIUM
     Indication: Product used for unknown indication
     Dosage: UNK
     Route: 058
     Dates: start: 202303

REACTIONS (7)
  - Feeling abnormal [Unknown]
  - Toothache [Unknown]
  - Asthenia [Unknown]
  - Cardiac disorder [Unknown]
  - Furuncle [Unknown]
  - Arthralgia [Unknown]
  - Somnolence [Unknown]

NARRATIVE: CASE EVENT DATE: 20230301
